FAERS Safety Report 7563683-3 (Version None)
Quarter: 2011Q2

REPORT INFORMATION
  Report Type: 
  Country: None (occurrence: None)
  Receive Date: 20110622
  Receipt Date: 20110607
  Transmission Date: 20111010
  Serious: Yes (Life-Threatening, Hospitalization)
  Sender: FDA-Public Use
  Company Number: US-ROCHE-784381

PATIENT
  Sex: Female

DRUGS (3)
  1. BEVACIZUMAB [Suspect]
     Dosage: OVER 30-90 MIN ON DAY 1 BEGINNING WITH CYCLE 2, PHASE B: (CYCLES 7-22)
     Route: 042
     Dates: start: 20100504
  2. PACLITAXEL [Suspect]
     Dosage: OVER 1 HR ON DAYS 1,8 AND 15
     Route: 042
  3. CARBOPLATIN [Suspect]
     Dosage: DOSE: 6 AUC ON DAY 1
     Route: 042

REACTIONS (11)
  - THERMAL BURN [None]
  - VENTRICULAR EXTRASYSTOLES [None]
  - DIARRHOEA [None]
  - ENCEPHALOPATHY [None]
  - ABDOMINAL INFECTION [None]
  - CONFUSIONAL STATE [None]
  - GASTROINTESTINAL FISTULA [None]
  - WOUND COMPLICATION [None]
  - HYPERTENSION [None]
  - CEREBRAL ISCHAEMIA [None]
  - SMALL INTESTINAL PERFORATION [None]
